FAERS Safety Report 14004678 (Version 1)
Quarter: 2017Q3

REPORT INFORMATION
  Report Type: Report from Study
  Country: US (occurrence: US)
  Receive Date: 20170922
  Receipt Date: 20170922
  Transmission Date: 20171128
  Serious: Yes (Hospitalization)
  Sender: FDA-Public Use
  Company Number: US-JNJFOC-20170506076

PATIENT
  Age: 78 Year
  Sex: Female

DRUGS (15)
  1. IMBRUVICA [Suspect]
     Active Substance: IBRUTINIB
     Indication: CHRONIC LYMPHOCYTIC LEUKAEMIA
     Route: 048
     Dates: start: 20161102
  2. IMBRUVICA [Suspect]
     Active Substance: IBRUTINIB
     Indication: LYMPHOCYTIC LEUKAEMIA
     Route: 048
     Dates: start: 20160415
  3. IMBRUVICA [Suspect]
     Active Substance: IBRUTINIB
     Indication: LYMPHOCYTIC LEUKAEMIA
     Route: 048
     Dates: start: 20161102
  4. PROTONIX [Concomitant]
     Active Substance: PANTOPRAZOLE SODIUM
  5. IMBRUVICA [Suspect]
     Active Substance: IBRUTINIB
     Indication: LYMPHOCYTIC LEUKAEMIA
     Route: 048
     Dates: start: 20161102
  6. FLORASTOR [Concomitant]
     Active Substance: SACCHAROMYCES CEREVISIAE
  7. ATORVASTATIN [Concomitant]
     Active Substance: ATORVASTATIN
  8. TOPROL XL [Concomitant]
     Active Substance: METOPROLOL SUCCINATE
  9. IMBRUVICA [Suspect]
     Active Substance: IBRUTINIB
     Indication: CHRONIC LYMPHOCYTIC LEUKAEMIA
     Route: 048
     Dates: start: 20160415
  10. TOLNAFTATE. [Concomitant]
     Active Substance: TOLNAFTATE
  11. IMBRUVICA [Suspect]
     Active Substance: IBRUTINIB
     Indication: CHRONIC LYMPHOCYTIC LEUKAEMIA
     Route: 048
     Dates: start: 20161102
  12. XARELTO [Concomitant]
     Active Substance: RIVAROXABAN
  13. COLACE [Concomitant]
     Active Substance: DOCUSATE SODIUM
  14. CELEXA [Concomitant]
     Active Substance: CITALOPRAM HYDROBROMIDE
  15. CIPRO [Suspect]
     Active Substance: CIPROFLOXACIN HYDROCHLORIDE
     Indication: URINARY TRACT INFECTION
     Route: 065

REACTIONS (9)
  - Cerebrovascular accident [Unknown]
  - Nerve compression [Not Recovered/Not Resolved]
  - Atrial fibrillation [Unknown]
  - Hypersensitivity [Unknown]
  - Intervertebral disc protrusion [Not Recovered/Not Resolved]
  - Back pain [Unknown]
  - Rash macular [Unknown]
  - Thrombosis [Unknown]
  - Urinary tract infection [Unknown]

NARRATIVE: CASE EVENT DATE: 2017
